FAERS Safety Report 7345605 (Version 2)
Quarter: 2013Q4

REPORT INFORMATION
  Report Type: Spontaneous
  Country: US (occurrence: US)
  Receive Date: 20100406
  Receipt Date: 20131212
  Transmission Date: 20140711
  Serious: Yes (Hospitalization, Other)
  Sender: FDA-Public Use
  Company Number: US-BAYER-201018205NA

PATIENT
  Age: 26 Year
  Sex: Female
  Weight: 66.67 kg

DRUGS (1)
  1. YASMIN [Suspect]
     Dosage: UNK UNK, QD
     Route: 048
     Dates: start: 200311, end: 20080315

REACTIONS (8)
  - Cholelithiasis [None]
  - Cholecystitis chronic [None]
  - Bile duct stone [None]
  - Pancreatitis [Recovering/Resolving]
  - Anaemia postoperative [Recovering/Resolving]
  - Abdominal pain upper [None]
  - Nausea [None]
  - Vomiting [None]
